FAERS Safety Report 24787713 (Version 1)
Quarter: 2024Q4

REPORT INFORMATION
  Report Type: Spontaneous
  Country: CA (occurrence: CA)
  Receive Date: 20241230
  Receipt Date: 20241230
  Transmission Date: 20250115
  Serious: Yes (Hospitalization, Other)
  Sender: BRISTOL-MYERS SQUIBB COMPANY
  Company Number: CA-BRISTOL-MYERS SQUIBB COMPANY-2024-199332

PATIENT
  Age: 72 Year
  Sex: Male

DRUGS (17)
  1. ELIQUIS [Suspect]
     Active Substance: APIXABAN
     Indication: Product used for unknown indication
  2. AMLODIPINE [Concomitant]
     Active Substance: AMLODIPINE BESYLATE
  3. ASPIRIN [Concomitant]
     Active Substance: ASPIRIN
  4. ATORVASTATIN [Concomitant]
     Active Substance: ATORVASTATIN
  5. AMOXICILLIN\CLAVULANATE POTASSIUM [Concomitant]
     Active Substance: AMOXICILLIN\CLAVULANATE POTASSIUM
     Route: 048
  6. DOXYCYCLINE [Concomitant]
     Active Substance: DOXYCYCLINE
  7. FUROSEMIDE [Concomitant]
     Active Substance: FUROSEMIDE
  8. METFORMIN [Concomitant]
     Active Substance: METFORMIN HYDROCHLORIDE
  9. METOPROLOL [Concomitant]
     Active Substance: METOPROLOL
  10. MYCAMINE [Concomitant]
     Active Substance: MICAFUNGIN SODIUM
     Dosage: POWDER FOR SOLUTION
     Route: 042
  11. PERINDOPRIL [Concomitant]
     Active Substance: PERINDOPRIL
  12. POTASSIUM CHLORIDE [Concomitant]
     Active Substance: POTASSIUM CHLORIDE
     Dosage: LIQUID
     Route: 042
  13. PREDNISONE [Concomitant]
     Active Substance: PREDNISONE
     Dosage: 5 DAYS
  14. RABEPRAZOLE [Concomitant]
     Active Substance: RABEPRAZOLE
  15. ALBUTEROL [Concomitant]
     Active Substance: ALBUTEROL
     Dosage: LIQUID
     Route: 042
  16. THIAMINE [Concomitant]
     Active Substance: THIAMINE
  17. TRELEGY ELLIPTA [Concomitant]
     Active Substance: FLUTICASONE FUROATE\UMECLIDINIUM BROMIDE\VILANTEROL TRIFENATATE

REACTIONS (9)
  - Anaemia [Recovering/Resolving]
  - Blood pressure decreased [Recovering/Resolving]
  - Dyspnoea exertional [Recovering/Resolving]
  - Gastrointestinal haemorrhage [Recovering/Resolving]
  - Haemoglobin abnormal [Recovering/Resolving]
  - Pyrexia [Recovering/Resolving]
  - Blood disorder [Recovering/Resolving]
  - Tachycardia [Recovering/Resolving]
  - Hospitalisation [Unknown]
